FAERS Safety Report 17275111 (Version 1)
Quarter: 2020Q1

REPORT INFORMATION
  Report Type: Report from Study
  Country: None (occurrence: CH)
  Receive Date: 20200116
  Receipt Date: 20200116
  Transmission Date: 20200409
  Serious: Yes (Death)
  Sender: FDA-Public Use
  Company Number: CH-ABBVIE-20K-151-3233383-00

PATIENT
  Sex: Female

DRUGS (1)
  1. HUMIRA [Suspect]
     Active Substance: ADALIMUMAB
     Indication: RHEUMATIC DISORDER
     Route: 058
     Dates: start: 201209, end: 202001

REACTIONS (1)
  - Death [Fatal]
